FAERS Safety Report 6407821-4 (Version None)
Quarter: 2009Q4

REPORT INFORMATION
  Report Type: 
  Country: None (occurrence: None)
  Receive Date: 20091015
  Receipt Date: 20090930
  Transmission Date: 20100525
  Serious: Yes (Other)
  Sender: FDA-Public Use
  Company Number: GXKR2009TR10832

PATIENT
  Age: 32 Year
  Sex: Female

DRUGS (3)
  1. ESCITALOPRAM [Suspect]
     Indication: DEPRESSION
     Dosage: 10 MG/DAY
  2. METOCLOPRAMIDE [Suspect]
     Indication: MIGRAINE
     Dosage: 10 MG, INTRAVENOUS
     Route: 042
  3. ANALGESICS (NO INGREDIENTS/SUBSTANCES) [Concomitant]

REACTIONS (5)
  - DRUG INTERACTION [None]
  - MIGRAINE [None]
  - NO THERAPEUTIC RESPONSE [None]
  - OCULOGYRIC CRISIS [None]
  - SEROTONIN SYNDROME [None]
